FAERS Safety Report 25736359 (Version 1)
Quarter: 2025Q3

REPORT INFORMATION
  Report Type: Spontaneous
  Country: US (occurrence: US)
  Receive Date: 20250828
  Receipt Date: 20250828
  Transmission Date: 20251021
  Serious: No
  Sender: SANOFI AVENTIS
  Company Number: US-SA-2025SA257285

PATIENT
  Age: 18 Year
  Sex: Female

DRUGS (5)
  1. DUPIXENT [Suspect]
     Active Substance: DUPILUMAB
     Indication: Dermatitis allergic
     Dosage: 300MG, QOW
     Route: 058
     Dates: start: 20250626
  2. BACITRACIN [Concomitant]
     Active Substance: BACITRACIN
  3. CEPHALEXIN [Concomitant]
     Active Substance: CEPHALEXIN
  4. EUCRISA [Concomitant]
     Active Substance: CRISABOROLE
  5. TACROLIMUS [Concomitant]
     Active Substance: TACROLIMUS

REACTIONS (1)
  - Rash [Unknown]

NARRATIVE: CASE EVENT DATE: 20250101
